FAERS Safety Report 7402166-8 (Version None)
Quarter: 2011Q1

REPORT INFORMATION
  Report Type: 
  Country: None (occurrence: None)
  Receive Date: 20110330
  Receipt Date: 20110318
  Transmission Date: 20110831
  Serious: Yes (Hospitalization)
  Sender: FDA-Public Use
  Company Number: 1000019565

PATIENT
  Age: 52 Year
  Sex: Male
  Weight: 90 kg

DRUGS (4)
  1. ROFLUMILAST (ROFLUMILAST) [Suspect]
     Indication: CHRONIC OBSTRUCTIVE PULMONARY DISEASE
     Dosage: 500 MCG (500 MCG, 1 IN 1 D)
  2. ONBREZ (INDACATEROL) (INDACATEROL) [Concomitant]
  3. MIFLONIDE (BUDESONIDE) (BUDESONIDE) [Concomitant]
  4. SPIRIVA (TIOTROPIUM BROMIDE) (TIOTROPIUM BROMIDE) [Concomitant]

REACTIONS (2)
  - MENTAL DISORDER [None]
  - TREMOR [None]
